FAERS Safety Report 6175938-8 (Version None)
Quarter: 2009Q2

REPORT INFORMATION
  Report Type: 
  Country: None (occurrence: None)
  Receive Date: 20090501
  Receipt Date: 20080229
  Transmission Date: 20091009
  Serious: Yes (Death, Hospitalization, Other)
  Sender: FDA-Public Use
  Company Number: US-ALEXION-A200700048

PATIENT

DRUGS (23)
  1. SOLIRIS [Suspect]
     Indication: PAROXYSMAL NOCTURNAL HAEMOGLOBINURIA
     Dosage: 600 MG, SINGLE
     Route: 042
     Dates: start: 20070713, end: 20070713
  2. SOLIRIS [Suspect]
     Dosage: 600 MG, SINGLE
     Route: 042
     Dates: start: 20070720, end: 20070720
  3. SOLIRIS [Suspect]
     Dosage: 600 MG, SINGLE
     Route: 042
     Dates: start: 20070727, end: 20070727
  4. SOLIRIS [Suspect]
     Dosage: 600 MG, SINGLE
     Route: 042
     Dates: start: 20070803, end: 20070803
  5. SOLIRIS [Suspect]
     Dosage: 900 MG, SINGLE
     Route: 042
     Dates: start: 20070810, end: 20070810
  6. SOLIRIS [Suspect]
     Dosage: 900 MG, SINGLE
     Route: 042
     Dates: start: 20071005, end: 20071005
  7. SOLIRIS [Suspect]
     Dosage: 900 MG, SINGLE
     Route: 042
     Dates: start: 20071019, end: 20071019
  8. SOLIRIS [Suspect]
     Dosage: 900 MG, SINGLE
     Route: 042
     Dates: start: 20071102, end: 20071102
  9. SOLIRIS [Suspect]
     Dosage: 900 MG, SINGLE
     Route: 042
     Dates: start: 20071116, end: 20071116
  10. SOLIRIS [Suspect]
     Dosage: 900 MG, SINGLE
     Route: 042
     Dates: start: 20071130, end: 20071130
  11. SOLIRIS [Suspect]
     Dosage: 900 MG, SINGLE
     Route: 042
     Dates: start: 20071214, end: 20071214
  12. SOLIRIS [Suspect]
     Dosage: 900 MG, SINGLE
     Route: 042
     Dates: start: 20071228, end: 20071228
  13. SOLIRIS [Suspect]
     Dosage: 900 MG, SINGLE
     Route: 042
     Dates: start: 20080114, end: 20080114
  14. DULCOLAX /00064401/ [Concomitant]
     Route: 054
  15. DULCOLAX /00064401/ [Concomitant]
     Route: 048
  16. APAP TAB [Concomitant]
     Indication: PAIN
     Dosage: 325 MG, PRN, 2 Q6H
  17. LANTUS [Concomitant]
     Dosage: 5 UT, QD, HS
  18. LASIX [Concomitant]
     Dosage: 20 MG, QD
  19. FAMOTIDINE [Concomitant]
     Dosage: 20 MG, QD
  20. CARVEDILOL [Concomitant]
     Dosage: 3.125 MG, BID
  21. HUMALOG [Concomitant]
     Dosage: AC, SLIDING SCALE, TID
  22. CENTRUM /00554501/ [Concomitant]
     Dosage: 1, TID
  23. MOM [Concomitant]
     Dosage: 30 ML, PRN, HS
     Route: 048

REACTIONS (6)
  - ANOREXIA [None]
  - CHOLECYSTITIS INFECTIVE [None]
  - DEPRESSION [None]
  - RENAL FAILURE ACUTE [None]
  - SEPTIC SHOCK [None]
  - UNRESPONSIVE TO STIMULI [None]
